FAERS Safety Report 25215277 (Version 1)
Quarter: 2025Q2

REPORT INFORMATION
  Report Type: Spontaneous
  Country: GB (occurrence: GB)
  Receive Date: 20250418
  Receipt Date: 20250418
  Transmission Date: 20250716
  Serious: Yes (Other)
  Sender: TEVA
  Company Number: GB-ASTRAZENECA-202502GBR009627GB

PATIENT
  Sex: Female
  Weight: 40 kg

DRUGS (14)
  1. LANSOPRAZOLE [Suspect]
     Active Substance: LANSOPRAZOLE
     Indication: Product used for unknown indication
     Route: 065
  2. CYCLOPHOSPHAMIDE [Concomitant]
     Active Substance: CYCLOPHOSPHAMIDE
     Indication: Product used for unknown indication
  3. PREDNISOLONE [Concomitant]
     Active Substance: PREDNISOLONE
     Indication: Product used for unknown indication
  4. CLARITHROMYCIN [Concomitant]
     Active Substance: CLARITHROMYCIN
     Indication: Product used for unknown indication
  5. NINTEDANIB [Concomitant]
     Active Substance: NINTEDANIB
     Indication: Product used for unknown indication
  6. MEDROXYPROGESTERONE [Concomitant]
     Active Substance: MEDROXYPROGESTERONE
     Indication: Product used for unknown indication
  7. MYCOPHENOLIC ACID [Concomitant]
     Active Substance: MYCOPHENOLIC ACID
     Indication: Product used for unknown indication
  8. FERROUS FUMARATE [Concomitant]
     Active Substance: FERROUS FUMARATE
     Indication: Product used for unknown indication
  9. AMOXICILLIN [Concomitant]
     Active Substance: AMOXICILLIN
     Indication: Product used for unknown indication
  10. ASTRAZENECA COVID-19 VACCINE [Suspect]
     Active Substance: AZD-1222
     Indication: Product used for unknown indication
     Route: 065
     Dates: start: 20210701
  11. METHYLPREDNISOLONE [Concomitant]
     Active Substance: METHYLPREDNISOLONE
     Indication: Product used for unknown indication
  12. ASTRAZENECA COVID-19 VACCINE [Suspect]
     Active Substance: AZD-1222
     Indication: Product used for unknown indication
     Route: 065
     Dates: start: 20210320
  13. LANSOPRAZOLE [Concomitant]
     Active Substance: LANSOPRAZOLE
     Indication: Product used for unknown indication
  14. RITUXIMAB [Concomitant]
     Active Substance: RITUXIMAB
     Indication: Product used for unknown indication

REACTIONS (31)
  - Interstitial lung disease [Unknown]
  - Haemorrhage [Unknown]
  - Pleuritic pain [Unknown]
  - Respiratory tract infection [Unknown]
  - Rhinorrhoea [Unknown]
  - Myalgia [Unknown]
  - Reflux gastritis [Unknown]
  - Post-acute COVID-19 syndrome [Unknown]
  - Inflammatory marker increased [Unknown]
  - Cough [Unknown]
  - Vitamin D deficiency [Unknown]
  - Pulmonary fibrosis [Unknown]
  - Fatigue [Unknown]
  - Productive cough [Unknown]
  - Illness [Unknown]
  - Chest pain [Unknown]
  - Cough [Unknown]
  - White blood cell count increased [Unknown]
  - Pyrexia [Unknown]
  - Vomiting [Unknown]
  - Dizziness [Unknown]
  - Haemoptysis [Unknown]
  - Emphysema [Unknown]
  - Diarrhoea [Unknown]
  - Palpitations [Unknown]
  - Hypersensitivity pneumonitis [Unknown]
  - Injury [Unknown]
  - Emotional distress [Unknown]
  - Weight decreased [Unknown]
  - Alopecia [Unknown]
  - Dyspnoea [Unknown]
